FAERS Safety Report 4278527-5 (Version None)
Quarter: 2004Q1

REPORT INFORMATION
  Report Type: 
  Country: None (occurrence: None)
  Receive Date: 20040121
  Receipt Date: 20040107
  Transmission Date: 20041129
  Serious: Yes (Hospitalization)
  Sender: FDA-Public Use
  Company Number: USA040155993

PATIENT
  Age: 62 Year
  Sex: Female
  Weight: 77 kg

DRUGS (2)
  1. HUMALOG [Suspect]
     Dates: start: 19930101
  2. HUMULIN N [Suspect]
     Dosage: 27 U/DAY
     Dates: start: 19930101

REACTIONS (5)
  - BALANCE DISORDER [None]
  - CEREBROVASCULAR ACCIDENT [None]
  - TRIPLE VESSEL BYPASS GRAFT [None]
  - UNEVALUABLE EVENT [None]
  - WEIGHT INCREASED [None]
